FAERS Safety Report 11672377 (Version 1)
Quarter: 2015Q4

REPORT INFORMATION
  Report Type: Spontaneous
  Country: US (occurrence: None)
  Receive Date: 20151027
  Receipt Date: 20151027
  Transmission Date: 20160304
  Serious: Yes (Other)
  Sender: FDA-Public Use
  Company Number: None

PATIENT
  Age: 44 Year
  Sex: Female
  Weight: 126.1 kg

DRUGS (13)
  1. VALSARTAN. [Concomitant]
     Active Substance: VALSARTAN
  2. PROAIR HFA [Suspect]
     Active Substance: ALBUTEROL SULFATE
     Indication: ASTHMA
  3. LEVOXYTHYROXINE [Concomitant]
  4. PROVENTIL [Concomitant]
     Active Substance: ALBUTEROL
  5. GABAPENTIN. [Concomitant]
     Active Substance: GABAPENTIN
  6. ZOLOFT [Concomitant]
     Active Substance: SERTRALINE HYDROCHLORIDE
  7. ADVIL [Concomitant]
     Active Substance: IBUPROFEN
  8. MELOXICAM. [Concomitant]
     Active Substance: MELOXICAM
  9. SALAGEN [Concomitant]
     Active Substance: PILOCARPINE HYDROCHLORIDE
  10. TRAZODONE [Concomitant]
     Active Substance: TRAZODONE HYDROCHLORIDE
  11. REQUIP [Concomitant]
     Active Substance: ROPINIROLE HYDROCHLORIDE
  12. LAMICTAL [Concomitant]
     Active Substance: LAMOTRIGINE
  13. EXCEDRIN [Concomitant]
     Active Substance: ACETAMINOPHEN\ASPIRIN\CAFFEINE

REACTIONS (2)
  - Product substitution issue [None]
  - Asthma [None]

NARRATIVE: CASE EVENT DATE: 20151026
